FAERS Safety Report 7269721-X (Version None)
Quarter: 2011Q1

REPORT INFORMATION
  Report Type: 
  Country: None (occurrence: None)
  Receive Date: 20110124
  Receipt Date: 20110112
  Transmission Date: 20110831
  Serious: Yes (Hospitalization)
  Sender: FDA-Public Use
  Company Number: 2010JP005855

PATIENT
  Age: 47 Year
  Sex: Female
  Weight: 43.7 kg

DRUGS (8)
  1. VESICARE [Suspect]
     Indication: HYPERTONIC BLADDER
     Dosage: 5 MG, UID/QD, ORAL
     Route: 048
     Dates: start: 20100914, end: 20100923
  2. SEDIEL (TANDOSPIRONE CITRATE) [Concomitant]
  3. MYSLEE (ZOLPIDEM) [Concomitant]
  4. DUROTEP (FENTANYL) [Concomitant]
  5. MUCOSTA (REBAMIPIDE) [Concomitant]
  6. RABEPRAZOLE SODIUM [Concomitant]
  7. SERTRALINE HYDROCHLORIDE [Concomitant]
  8. LAC B (LACTOBACILLUS BIFIDUS, LYOPHILIZED) [Concomitant]

REACTIONS (5)
  - MECHANICAL ILEUS [None]
  - NEOPLASM MALIGNANT [None]
  - GASTROINTESTINAL HYPOMOTILITY [None]
  - MALIGNANT ASCITES [None]
  - RECTAL CANCER RECURRENT [None]
